FAERS Safety Report 6048164-0 (Version None)
Quarter: 2009Q1

REPORT INFORMATION
  Report Type: 
  Country: None (occurrence: None)
  Receive Date: 20090123
  Receipt Date: 20090114
  Transmission Date: 20090719
  Serious: Yes (Other)
  Sender: FDA-Public Use
  Company Number: US-BIOGENIDEC-2008BI031090

PATIENT
  Age: 65 Year
  Sex: Male

DRUGS (1)
  1. TYSABRI [Suspect]
     Indication: MULTIPLE SCLEROSIS
     Route: 042
     Dates: start: 20070606, end: 20080312

REACTIONS (6)
  - CATARACT [None]
  - DRUG INEFFECTIVE [None]
  - MACULOPATHY [None]
  - OPTIC ATROPHY [None]
  - OPTIC NEURITIS [None]
  - RETINAL DETACHMENT [None]
